FAERS Safety Report 8821035 (Version 2)
Quarter: 2012Q4

REPORT INFORMATION
  Report Type: 
  Country: US (occurrence: US)
  Receive Date: 20121002
  Receipt Date: 20121114
  Transmission Date: 20130627
  Serious: Yes (Other)
  Sender: FDA-Public Use
  Company Number: US-ROCHE-1131414

PATIENT
  Sex: Female

DRUGS (2)
  1. RITUXAN [Suspect]
     Indication: MULTIPLE SCLEROSIS
     Route: 065
     Dates: start: 20110120, end: 20120820
  2. RITUXAN [Suspect]
     Indication: OFF LABEL USE

REACTIONS (2)
  - Drug intolerance [Unknown]
  - Demyelination [Unknown]
